FAERS Safety Report 9780297 (Version 1)
Quarter: 2013Q4

REPORT INFORMATION
  Report Type: Report from Study
  Country: BE (occurrence: BE)
  Receive Date: 20131224
  Receipt Date: 20131224
  Transmission Date: 20140711
  Serious: Yes (Death, Other)
  Sender: FDA-Public Use
  Company Number: BE-ROCHE-1322574

PATIENT
  Sex: 0

DRUGS (3)
  1. MYCOPHENOLATE MOFETIL [Suspect]
     Indication: PROPHYLAXIS AGAINST TRANSPLANT REJECTION
     Route: 065
  2. TACROLIMUS [Suspect]
     Indication: PROPHYLAXIS AGAINST TRANSPLANT REJECTION
     Route: 065
  3. ANTITHYMOCYTE GLOBULIN [Suspect]
     Indication: PROPHYLAXIS AGAINST TRANSPLANT REJECTION
     Dosage: 12.6 TO 29.4 MG/KG
     Route: 065

REACTIONS (13)
  - Adenocarcinoma gastric [Fatal]
  - Metastases to liver [Fatal]
  - Cytomegalovirus infection [Recovered/Resolved]
  - Gastrointestinal infection [Recovering/Resolving]
  - Dyspepsia [Unknown]
  - Insomnia [Unknown]
  - Headache [Unknown]
  - Respiratory tract infection [Unknown]
  - Musculoskeletal pain [Unknown]
  - Memory impairment [Unknown]
  - Anaemia [Unknown]
  - Leukopenia [Unknown]
  - Neutropenia [Unknown]
